FAERS Safety Report 4467099-8 (Version None)
Quarter: 2004Q4

REPORT INFORMATION
  Report Type: 
  Country: None (occurrence: None)
  Receive Date: 20041004
  Receipt Date: 20041004
  Transmission Date: 20050328
  Serious: Yes (Hospitalization)
  Sender: FDA-Public Use
  Company Number: None

PATIENT
  Age: 41 Year
  Sex: Female
  Weight: 72.5755 kg

DRUGS (3)
  1. SEREVENT [Suspect]
     Indication: ASTHMA
     Dosage: 1 PUFF 2X 1 DAILY
     Dates: start: 20040701, end: 20040701
  2. ADVAIR DISKUS 100/50 [Suspect]
     Indication: ASTHMA
     Dosage: 1 PUFF 2X 1 DAILY
     Dates: start: 20040701, end: 20040701
  3. FLOVENT INHAL [Concomitant]

REACTIONS (4)
  - ASTHMA [None]
  - CONDITION AGGRAVATED [None]
  - HYPERSENSITIVITY [None]
  - REACTION TO DRUG EXCIPIENT [None]
